FAERS Safety Report 5771685-2 (Version None)
Quarter: 2008Q2

REPORT INFORMATION
  Report Type: 
  Country: None (occurrence: None)
  Receive Date: 20080613
  Receipt Date: 20080606
  Transmission Date: 20081010
  Serious: Yes (Hospitalization)
  Sender: FDA-Public Use
  Company Number: BE-BAYER-200819883GPV

PATIENT
  Age: 75 Year
  Sex: Male

DRUGS (2)
  1. LEVITRA [Suspect]
     Indication: ERECTILE DYSFUNCTION
     Route: 048
     Dates: start: 20080509
  2. LEVITRA [Suspect]
     Route: 048
     Dates: start: 20080605

REACTIONS (3)
  - BLOOD PRESSURE DECREASED [None]
  - PARALYSIS [None]
  - THROMBOSIS [None]
